FAERS Safety Report 12966114 (Version 1)
Quarter: 2016Q4

REPORT INFORMATION
  Report Type: Spontaneous
  Country: US (occurrence: US)
  Receive Date: 20161120
  Receipt Date: 20161120
  Transmission Date: 20170207
  Serious: Yes (Other)
  Sender: FDA-Public Use
  Company Number: None

PATIENT
  Age: 65 Year
  Sex: Female

DRUGS (6)
  1. SEROQUEL [Concomitant]
     Active Substance: QUETIAPINE FUMARATE
  2. CYMBALTA [Suspect]
     Active Substance: DULOXETINE HYDROCHLORIDE
     Indication: PRODUCT USED FOR UNKNOWN INDICATION
     Dates: start: 20101111, end: 20111116
  3. ATIVAN [Concomitant]
     Active Substance: LORAZEPAM
  4. VISTARIL [Concomitant]
     Active Substance: HYDROXYZINE PAMOATE
  5. ZOLOFT [Concomitant]
     Active Substance: SERTRALINE HYDROCHLORIDE
  6. PRO BIOTIC BLEND [Concomitant]
     Active Substance: BIFIDOBACTERIUM SPP.\BIFIDOBACTERIUM LONGUM\LACTOBACILLUS ACIDOPHILUS

REACTIONS (3)
  - Feeling abnormal [None]
  - Depression [None]
  - Anxiety [None]

NARRATIVE: CASE EVENT DATE: 20111116
